FAERS Safety Report 17294680 (Version 8)
Quarter: 2022Q2

REPORT INFORMATION
  Report Type: Spontaneous
  Country: US (occurrence: US)
  Receive Date: 20200121
  Receipt Date: 20220512
  Transmission Date: 20220721
  Serious: No
  Sender: FDA-Public Use
  Company Number: US-PFIZER INC-2020022741

PATIENT
  Age: 73 Year
  Sex: Female
  Weight: 69.85 kg

DRUGS (5)
  1. CELONTIN [Suspect]
     Active Substance: METHSUXIMIDE
     Indication: Epilepsy
     Dosage: 300 MG, 1X/DAY (1 PO Q DAY (1X/DAY))
     Route: 048
     Dates: start: 1950
  2. CELONTIN [Suspect]
     Active Substance: METHSUXIMIDE
     Indication: Essential hypertension
  3. CELONTIN [Suspect]
     Active Substance: METHSUXIMIDE
     Indication: Hyperlipidaemia
  4. DIAMOX SEQUELS [Concomitant]
     Active Substance: ACETAZOLAMIDE
     Indication: Epilepsy
     Dosage: 125 MG, DAILY ((1/2 OF A 250MG TABLET DAILY))
     Dates: start: 1950
  5. CLONAZEPAM [Concomitant]
     Active Substance: CLONAZEPAM
     Indication: Epilepsy
     Dosage: 0.5 MG, 4X/DAY (0.5MG 1/2 TABLET 4 TIMES DAILY)

REACTIONS (3)
  - Product dispensing error [Unknown]
  - Influenza [Unknown]
  - Hypertension [Unknown]
